FAERS Safety Report 25467029 (Version 1)
Quarter: 2025Q2

REPORT INFORMATION
  Report Type: Spontaneous
  Country: CA (occurrence: CA)
  Receive Date: 20250623
  Receipt Date: 20250623
  Transmission Date: 20250716
  Serious: Yes (Other)
  Sender: CSL BEHRING
  Company Number: CA-BEH-2025209423

PATIENT

DRUGS (4)
  1. HUMAN IMMUNOGLOBULIN G [Suspect]
     Active Substance: HUMAN IMMUNOGLOBULIN G
     Indication: Chronic inflammatory demyelinating polyradiculoneuropathy
     Route: 042
  2. TRUXIMA [Suspect]
     Active Substance: RITUXIMAB-ABBS
     Indication: Chronic inflammatory demyelinating polyradiculoneuropathy
     Route: 065
  3. TRUXIMA [Suspect]
     Active Substance: RITUXIMAB-ABBS
     Route: 042
  4. TRUXIMA [Suspect]
     Active Substance: RITUXIMAB-ABBS
     Dosage: UNK, QW (1 EVERY 1 WEEKS)
     Route: 065

REACTIONS (4)
  - Drug effective for unapproved indication [Unknown]
  - COVID-19 [Unknown]
  - Intentional dose omission [Unknown]
  - Off label use [Unknown]
